FAERS Safety Report 9613355 (Version 3)
Quarter: 2018Q2

REPORT INFORMATION
  Report Type: Spontaneous
  Country: DK (occurrence: DK)
  Receive Date: 20131010
  Receipt Date: 20180524
  Transmission Date: 20180711
  Serious: Yes (Life-Threatening, Hospitalization, Other)
  Sender: FDA-Public Use
  Company Number: DK-PFIZER INC-2013280818

PATIENT
  Age: 30 Year
  Sex: Female

DRUGS (6)
  1. TRANEXAMIC ACID. [Suspect]
     Active Substance: TRANEXAMIC ACID
     Indication: UTERINE POLYP
  2. PERLUTEX [Concomitant]
     Indication: UTERINE POLYP
  3. METHYLPHENIDATE. [Concomitant]
     Active Substance: METHYLPHENIDATE
     Dosage: 10 MG, 2X/DAY
  4. LAMOTRIGINE. [Concomitant]
     Active Substance: LAMOTRIGINE
     Dosage: 100 MG, 1X/DAY
  5. TRANEXAMIC ACID. [Suspect]
     Active Substance: TRANEXAMIC ACID
     Indication: UTERINE LEIOMYOMA
     Dosage: 1 G, 3X/DAY
  6. PERLUTEX [Concomitant]
     Indication: UTERINE LEIOMYOMA
     Dosage: 1 DF, 2X/DAY(1 TABLET TWICE A DAY FOR TEN DAYS)

REACTIONS (2)
  - Cardiac arrest [Recovered/Resolved]
  - Pulmonary embolism [Unknown]
